FAERS Safety Report 10832215 (Version 1)
Quarter: 2015Q1

REPORT INFORMATION
  Report Type: Spontaneous
  Country: US (occurrence: US)
  Receive Date: 20150219
  Receipt Date: 20150219
  Transmission Date: 20150721
  Serious: No
  Sender: FDA-Public Use
  Company Number: US-RECKITT BENCKISER PHARMACEUTICAL, INC-RB-63158-2014

PATIENT

DRUGS (8)
  1. SUBOXONE [Suspect]
     Active Substance: BUPRENORPHINE HYDROCHLORIDE\NALOXONE HYDROCHLORIDE
     Indication: OFF LABEL USE
     Dosage: DOSING DETAILS UNKNOWN
     Route: 065
     Dates: start: 2009
  2. ECSTASY [Suspect]
     Active Substance: METHYLENEDIOXYMETHAMPHETAMINE
     Indication: PRODUCT USED FOR UNKNOWN INDICATION
     Dosage: DOSING DETAILS UNKNOWN
     Route: 065
  3. NALTREXONE [Suspect]
     Active Substance: NALTREXONE
     Indication: PRODUCT USED FOR UNKNOWN INDICATION
     Dosage: DOSING DETAILS UNKNOWN
     Route: 065
  4. IMODIUM [Suspect]
     Active Substance: LOPERAMIDE HYDROCHLORIDE
     Indication: PAIN MANAGEMENT
  5. IMODIUM [Suspect]
     Active Substance: LOPERAMIDE HYDROCHLORIDE
     Indication: GASTROINTESTINAL DISORDER
  6. SUBOXONE [Suspect]
     Active Substance: BUPRENORPHINE HYDROCHLORIDE\NALOXONE HYDROCHLORIDE
     Indication: OFF LABEL USE
     Dosage: SUBOXONE FILM; DOSING DETAILS UNKNOWN; TAPERED OFF THE FILM
     Route: 065
     Dates: start: 2009
  7. IMODIUM [Suspect]
     Active Substance: LOPERAMIDE HYDROCHLORIDE
     Indication: IRRITABLE BOWEL SYNDROME
     Dosage: DOSING DETAILS UNKNOWN
     Route: 065
  8. IMODIUM [Suspect]
     Active Substance: LOPERAMIDE HYDROCHLORIDE
     Indication: IRRITABLE BOWEL SYNDROME

REACTIONS (9)
  - Drug ineffective for unapproved indication [Recovered/Resolved]
  - Anxiety [Not Recovered/Not Resolved]
  - Angina pectoris [Not Recovered/Not Resolved]
  - Tremor [Not Recovered/Not Resolved]
  - Off label use [Recovered/Resolved]
  - Drug withdrawal syndrome [Not Recovered/Not Resolved]
  - Drug abuse [Not Recovered/Not Resolved]
  - Unevaluable event [Unknown]
  - Hot flush [Not Recovered/Not Resolved]
